FAERS Safety Report 20787326 (Version 1)
Quarter: 2022Q2

REPORT INFORMATION
  Report Type: Spontaneous
  Country: US (occurrence: US)
  Receive Date: 20220505
  Receipt Date: 20220505
  Transmission Date: 20220721
  Serious: No
  Sender: FDA-Public Use
  Company Number: US-SA-SAC20220503001531

PATIENT
  Sex: Female

DRUGS (1)
  1. AUBAGIO [Suspect]
     Active Substance: TERIFLUNOMIDE
     Indication: Multiple sclerosis
     Dosage: 14 MG, QD
     Route: 048

REACTIONS (6)
  - Pain [Unknown]
  - Fatigue [Unknown]
  - Sensory disturbance [Unknown]
  - Hypoaesthesia [Unknown]
  - Paraesthesia [Unknown]
  - Product dose omission issue [Unknown]
